FAERS Safety Report 8370735-7 (Version None)
Quarter: 2012Q2

REPORT INFORMATION
  Report Type: 
  Country: None (occurrence: None)
  Receive Date: 20120518
  Receipt Date: 20120120
  Transmission Date: 20120825
  Serious: No
  Sender: FDA-Public Use
  Company Number: US-ALEXION-A201200106

PATIENT
  Sex: Female
  Weight: 60.1 kg

DRUGS (10)
  1. CALCIUM [Concomitant]
     Dosage: 1000 MG, UNK
  2. VITAMIN D [Concomitant]
     Dosage: 400 IU, QD
  3. SOLIRIS [Suspect]
     Indication: PAROXYSMAL NOCTURNAL HAEMOGLOBINURIA
     Dosage: 900 MG, Q14 DAYS
     Route: 042
     Dates: start: 20050801
  4. SOLIRIS [Suspect]
     Dosage: 900 MG, Q 12 DAYS
     Dates: start: 20120212
  5. ACETAMINOPHEN [Concomitant]
     Dosage: 650 MG, QD
     Route: 048
     Dates: start: 20080809
  6. MIRENA [Concomitant]
     Dosage: UNK
  7. FOLIC ACID [Concomitant]
     Dosage: 1.6 MG, QD
     Route: 048
  8. PREDNISONE [Concomitant]
     Indication: HAEMOLYSIS
     Dosage: 30 MG, QOD
     Route: 048
  9. DIPHENHYDRAMINE HYDROCHLORIDE [Concomitant]
     Dosage: 50 MG, QD
     Route: 048
     Dates: start: 20080809
  10. COUMADIN [Concomitant]
     Dosage: 5 MG, QD
     Route: 048

REACTIONS (11)
  - PHARYNGITIS [None]
  - CHROMATURIA [None]
  - EXTRAVASCULAR HAEMOLYSIS [None]
  - URINARY TRACT INFECTION [None]
  - ANAEMIA [None]
  - FATIGUE [None]
  - PLATELET COUNT DECREASED [None]
  - BLOOD LACTATE DEHYDROGENASE INCREASED [None]
  - COUGH [None]
  - GINGIVAL BLEEDING [None]
  - RETICULOCYTE COUNT INCREASED [None]
